FAERS Safety Report 19065830 (Version 3)
Quarter: 2021Q2

REPORT INFORMATION
  Report Type: Report from Study
  Country: None (occurrence: US)
  Receive Date: 20210327
  Receipt Date: 20210407
  Transmission Date: 20210717
  Serious: Yes (Death, Hospitalization, Other)
  Sender: FDA-Public Use
  Company Number: US-ABBVIE-21K-163-3830090-00

PATIENT
  Age: 76 Year
  Sex: Male

DRUGS (3)
  1. VENCLEXTA [Suspect]
     Active Substance: VENETOCLAX
     Indication: ACUTE LEUKAEMIA
     Dosage: THEN TAKE 2 TABLETS BY MOUTH EVERY DAY THEREAFTER
     Route: 048
     Dates: start: 20210324
  2. VENCLEXTA [Suspect]
     Active Substance: VENETOCLAX
     Indication: ACUTE MYELOID LEUKAEMIA
  3. VENCLEXTA [Suspect]
     Active Substance: VENETOCLAX
     Indication: CHRONIC MYELOMONOCYTIC LEUKAEMIA
     Dosage: TAKE 1 TABLET BY MOUTH ON DAY 1
     Route: 048
     Dates: start: 20210323, end: 20210323

REACTIONS (4)
  - Hospitalisation [Not Recovered/Not Resolved]
  - Illness [Unknown]
  - Death [Fatal]
  - Pneumonia [Recovering/Resolving]

NARRATIVE: CASE EVENT DATE: 202103
